FAERS Safety Report 4963112-X (Version None)
Quarter: 2006Q2

REPORT INFORMATION
  Report Type: 
  Country: None (occurrence: None)
  Receive Date: 20060405
  Receipt Date: 20060331
  Transmission Date: 20061013
  Serious: Yes (Other)
  Sender: FDA-Public Use
  Company Number: FR-GLAXOSMITHKLINE-B0418974A

PATIENT
  Age: 62 Year
  Sex: Female

DRUGS (4)
  1. AVANDAMET [Suspect]
     Route: 065
     Dates: start: 20050201, end: 20050601
  2. INSULINE [Concomitant]
     Route: 065
     Dates: start: 20050401
  3. LAROXYL [Concomitant]
  4. DIAMICRON [Concomitant]

REACTIONS (5)
  - ACUTE PULMONARY OEDEMA [None]
  - CARDIAC DISORDER [None]
  - CARDIAC FAILURE [None]
  - DYSPNOEA [None]
  - PERICARDIAL EFFUSION [None]
